FAERS Safety Report 16464629 (Version 2)
Quarter: 2019Q4

REPORT INFORMATION
  Report Type: Spontaneous
  Country: DE (occurrence: DE)
  Receive Date: 20190621
  Receipt Date: 20191211
  Transmission Date: 20200122
  Serious: Yes (Other)
  Sender: FDA-Public Use
  Company Number: PHHY2019DE139511

PATIENT
  Age: 33 Year
  Sex: Male
  Weight: 47 kg

DRUGS (12)
  1. ORFIRIL [Interacting]
     Active Substance: VALPROATE SODIUM
     Indication: EPILEPSY
     Dosage: 1200 MG, QD
     Route: 048
     Dates: start: 2001, end: 2010
  2. AUGMENTAN [Interacting]
     Active Substance: AMOXICILLIN\CLAVULANATE POTASSIUM
     Indication: ORCHITIS NONINFECTIVE
     Dosage: UNK
     Route: 065
  3. CIPROFLOXACIN. [Suspect]
     Active Substance: CIPROFLOXACIN
     Indication: ORCHITIS NONINFECTIVE
     Dosage: UNK
     Route: 065
  4. AUGMENTAN [Interacting]
     Active Substance: AMOXICILLIN\CLAVULANATE POTASSIUM
     Indication: ORCHITIS NONINFECTIVE
  5. ORFIRIL [Interacting]
     Active Substance: VALPROATE SODIUM
     Dosage: 900 MG, Q24H
     Route: 065
     Dates: start: 2010, end: 2014
  6. ORFIRIL [Interacting]
     Active Substance: VALPROATE SODIUM
     Dosage: 1050 MG, Q24H
     Route: 065
     Dates: start: 2019
  7. ORFIRIL [Interacting]
     Active Substance: VALPROATE SODIUM
     Dosage: 900 MG, Q24H
     Route: 065
     Dates: start: 2019
  8. VANCOMYCIN [Interacting]
     Active Substance: VANCOMYCIN
     Indication: ORCHITIS NONINFECTIVE
     Dosage: UNK
     Route: 065
  9. OSPOLOT [Concomitant]
     Active Substance: SULTHIAME
     Indication: EPILEPSY
     Dosage: UNK
     Route: 065
  10. VANCOMYCIN [Interacting]
     Active Substance: VANCOMYCIN
     Indication: ORCHITIS NONINFECTIVE
  11. ORFIRIL [Interacting]
     Active Substance: VALPROATE SODIUM
     Dosage: 300 MG, Q12H
     Route: 065
     Dates: start: 2014, end: 201906
  12. CIPROFLOXACIN. [Interacting]
     Active Substance: CIPROFLOXACIN
     Indication: ORCHITIS NONINFECTIVE

REACTIONS (6)
  - Seizure [Unknown]
  - White blood cell count increased [Not Recovered/Not Resolved]
  - Bone density decreased [Not Recovered/Not Resolved]
  - Osteopenia [Not Recovered/Not Resolved]
  - Drug interaction [Unknown]
  - Therapeutic product effect decreased [Unknown]
